FAERS Safety Report 8762365 (Version 1)
Quarter: 2012Q4

REPORT INFORMATION
  Report Type: 
  Country: JP (occurrence: JP)
  Receive Date: 20120830
  Receipt Date: 20120830
  Transmission Date: 20130627
  Serious: Yes (Hospitalization)
  Sender: FDA-Public Use
  Company Number: PHHY2012JP072492

PATIENT
  Age: 78 Year
  Sex: Male

DRUGS (2)
  1. TACROLIMUS [Suspect]
     Indication: COLITIS ULCERATIVE
     Dosage: 5 mg/kg
     Route: 042
     Dates: start: 2011
  2. TACROLIMUS [Suspect]
     Dosage: 2 mg/kg, UNK

REACTIONS (7)
  - Colitis ulcerative [Unknown]
  - Abdominal pain [Unknown]
  - Diarrhoea [Unknown]
  - Melaena [Unknown]
  - Renal impairment [Unknown]
  - Electrolyte imbalance [Unknown]
  - Immunosuppressant drug level increased [Unknown]
